FAERS Safety Report 14898105 (Version 2)
Quarter: 2018Q2

REPORT INFORMATION
  Report Type: Spontaneous
  Country: US (occurrence: US)
  Receive Date: 20180515
  Receipt Date: 20180517
  Transmission Date: 20180711
  Serious: No
  Sender: FDA-Public Use
  Company Number: US-SA-2018SA025474

PATIENT
  Age: 72 Year
  Sex: Female

DRUGS (2)
  1. SOLOSTAR [Suspect]
     Active Substance: DEVICE
     Indication: TYPE 2 DIABETES MELLITUS
     Dates: start: 2017
  2. TOUJEO [Suspect]
     Active Substance: INSULIN GLARGINE
     Indication: TYPE 2 DIABETES MELLITUS
     Dosage: START DATE - CLOSE TO A YEAR?DAILY DOSE - 80U AND 40 U TAKEN IN 2 INJECTIONS AT THE SAME TIME
     Route: 051
     Dates: start: 2017

REACTIONS (3)
  - Weight increased [Unknown]
  - Abdominal distension [Unknown]
  - Product use issue [Unknown]

NARRATIVE: CASE EVENT DATE: 2017
